FAERS Safety Report 12375048 (Version 1)
Quarter: 2016Q2

REPORT INFORMATION
  Report Type: Spontaneous
  Country: GT (occurrence: GT)
  Receive Date: 20160517
  Receipt Date: 20160517
  Transmission Date: 20160815
  Serious: Yes (Death, Other)
  Sender: FDA-Public Use
  Company Number: GT-009507513-1510GTM011571

PATIENT
  Age: 71 Year
  Sex: Female

DRUGS (1)
  1. KEYTRUDA [Suspect]
     Active Substance: PEMBROLIZUMAB
     Indication: METASTATIC MALIGNANT MELANOMA
     Dosage: 200MG, 5 TIMES EVERY 21 DAYS
     Route: 042

REACTIONS (3)
  - Cough [Unknown]
  - Malignant neoplasm progression [Fatal]
  - Diarrhoea [Unknown]
